FAERS Safety Report 4690184-2 (Version None)
Quarter: 2005Q2

REPORT INFORMATION
  Report Type: 
  Country: None (occurrence: None)
  Receive Date: 20050613
  Receipt Date: 20050603
  Transmission Date: 20051028
  Serious: Yes (Other)
  Sender: FDA-Public Use
  Company Number: 2005-05-1723

PATIENT
  Sex: Male

DRUGS (1)
  1. CELESTONE SOLUSPAN [Suspect]

REACTIONS (1)
  - NO ADVERSE DRUG EFFECT [None]
